FAERS Safety Report 20461268 (Version 1)
Quarter: 2022Q1

REPORT INFORMATION
  Report Type: Spontaneous
  Country: CA (occurrence: CA)
  Receive Date: 20220211
  Receipt Date: 20220211
  Transmission Date: 20220423
  Serious: Yes (Hospitalization, Other)
  Sender: FDA-Public Use
  Company Number: CA-PFIZER INC-202200227884

PATIENT
  Age: 20 Year
  Sex: Male

DRUGS (3)
  1. METHOTREXATE SODIUM [Suspect]
     Active Substance: METHOTREXATE SODIUM
     Dosage: UNK
     Dates: start: 201803
  2. METHOTREXATE SODIUM [Suspect]
     Active Substance: METHOTREXATE SODIUM
     Dosage: 25 MG
     Route: 058
     Dates: start: 201805
  3. ZOFRAN [Concomitant]
     Active Substance: ONDANSETRON HYDROCHLORIDE
     Dosage: UNK

REACTIONS (22)
  - Perforation [Unknown]
  - Rectal haemorrhage [Unknown]
  - Duodenal ulcer [Unknown]
  - Gastric ulcer [Unknown]
  - Oesophageal ulcer [Unknown]
  - Rectal ulcer [Unknown]
  - Large intestinal ulcer [Unknown]
  - Colitis [Unknown]
  - Granuloma [Unknown]
  - Abscess intestinal [Unknown]
  - Faeces soft [Unknown]
  - Abdominal pain [Unknown]
  - Decreased appetite [Unknown]
  - Drug intolerance [Unknown]
  - Nausea [Unknown]
  - Lymphocytic oesophagitis [Unknown]
  - Anal inflammation [Unknown]
  - Duodenitis [Unknown]
  - Chronic gastritis [Unknown]
  - Malaise [Unknown]
  - Gastrointestinal mucosal disorder [Unknown]
  - Off label use [Unknown]

NARRATIVE: CASE EVENT DATE: 20180101
